FAERS Safety Report 14504354 (Version 1)
Quarter: 2018Q1

REPORT INFORMATION
  Report Type: Spontaneous
  Country: US (occurrence: US)
  Receive Date: 20180208
  Receipt Date: 20180208
  Transmission Date: 20180509
  Serious: No
  Sender: FDA-Public Use
  Company Number: US-JNJFOC-20171206338

PATIENT
  Sex: Male

DRUGS (1)
  1. TYLENOL REGULAR STRENGTH [Suspect]
     Active Substance: ACETAMINOPHEN
     Indication: PRODUCT USED FOR UNKNOWN INDICATION
     Dosage: ABOUT 6 HOURS APART FOR ABOUT A WEEK
     Route: 065

REACTIONS (3)
  - Product solubility abnormal [Unknown]
  - Incorrect dose administered [Unknown]
  - Dysphagia [Recovered/Resolved]
